FAERS Safety Report 7329182 (Version 3)
Quarter: 2014Q2

REPORT INFORMATION
  Report Type: Spontaneous
  Country: US (occurrence: None)
  Receive Date: 20100305
  Receipt Date: 20140508
  Transmission Date: 20141212
  Serious: Yes (Hospitalization, Other)
  Sender: FDA-Public Use
  Company Number: 2010S1000766

PATIENT
  Age: 63 Year
  Sex: Female
  Weight: 55.34 kg

DRUGS (5)
  1. SODIUM PHOSPHATE, DIBASIC, ANHYDROUS \SODIUM PHOSPHATE, MONOBASIC, MONOHYDRATE [Suspect]
     Indication: COLONOSCOPY
     Dosage: 45 ML;X1;PO
     Route: 048
     Dates: start: 20011115, end: 20011115
  2. FLEET ENEMA [Suspect]
     Indication: COLONOSCOPY
     Route: 054
  3. FURAZOLIDONE (FURAZOLIDONE) [Concomitant]
  4. ZESTORETIC (HYDROCHLOROTHIAZIDE, LISINOPRIL) [Concomitant]
  5. TUMS(CALCIUM CARBONATE, MAGNESIUM CARBONATE, MAGNESIUM TRISILICATE) [Concomitant]

REACTIONS (53)
  - Renal failure acute [None]
  - Toxicity to various agents [None]
  - Hypocalcaemia [None]
  - Hypotension [None]
  - Abdominal pain upper [None]
  - Pain [None]
  - Hydronephrosis [None]
  - Diarrhoea [None]
  - Muscle spasms [None]
  - Abdominal distension [None]
  - Abdominal pain upper [None]
  - Calcinosis [None]
  - Nephrosclerosis [None]
  - Tubulointerstitial nephritis [None]
  - Cystitis [None]
  - Self-medication [None]
  - Anaemia of chronic disease [None]
  - Hiatus hernia [None]
  - Gastric haemorrhage [None]
  - Back pain [None]
  - Muscle spasms [None]
  - Anxiety [None]
  - Headache [None]
  - Asthenia [None]
  - Dizziness [None]
  - Fatigue [None]
  - Rhinorrhoea [None]
  - Oropharyngeal pain [None]
  - Bronchitis [None]
  - Nasal congestion [None]
  - Osteoporosis [None]
  - Metabolic disorder [None]
  - Multiple fractures [None]
  - Cough [None]
  - Dyspnoea paroxysmal nocturnal [None]
  - Tracheitis [None]
  - Abdominal discomfort [None]
  - Aphonia [None]
  - Dyspepsia [None]
  - Musculoskeletal pain [None]
  - Eructation [None]
  - Multiple sclerosis [None]
  - Hyperphagia [None]
  - Renal failure chronic [None]
  - Ischaemic nephropathy [None]
  - Acute phosphate nephropathy [None]
  - Renal vessel disorder [None]
  - Renal artery stenosis [None]
  - Hyperparathyroidism secondary [None]
  - Hypovolaemia [None]
  - Hypotension [None]
  - Nephrogenic anaemia [None]
  - Renal osteodystrophy [None]
